FAERS Safety Report 16120232 (Version 3)
Quarter: 2021Q2

REPORT INFORMATION
  Report Type: Report from Study
  Country: FR (occurrence: FR)
  Receive Date: 20190326
  Receipt Date: 20210427
  Transmission Date: 20210716
  Serious: Yes (Hospitalization)
  Sender: FDA-Public Use
  Company Number: FR-SHIRE-FR201909570

PATIENT

DRUGS (2)
  1. IDURSULFASE [Suspect]
     Active Substance: IDURSULFASE
     Indication: MUCOPOLYSACCHARIDOSIS II
     Dosage: 0.52 MILLIGRAM/KILOGRAM, 1X/WEEK
     Route: 042
     Dates: start: 20070202
  2. IDURSULFASE [Suspect]
     Active Substance: IDURSULFASE
     Dosage: 0.61 MILLIGRAM/KILOGRAM, 1X/2WKS
     Route: 042
     Dates: start: 20140919

REACTIONS (1)
  - Oxygen saturation decreased [Recovered/Resolved]

NARRATIVE: CASE EVENT DATE: 20170506
